FAERS Safety Report 23739131 (Version 1)
Quarter: 2024Q2

REPORT INFORMATION
  Report Type: Spontaneous
  Country: CA (occurrence: CA)
  Receive Date: 20240413
  Receipt Date: 20240413
  Transmission Date: 20240715
  Serious: Yes (Other)
  Sender: FDA-Public Use
  Company Number: CA-AMGEN-CANSP2024072252

PATIENT

DRUGS (1)
  1. ENBREL [Suspect]
     Active Substance: ETANERCEPT
     Indication: Foetal exposure during pregnancy
     Dosage: UNK
     Route: 064

REACTIONS (2)
  - Foetal distress syndrome [Recovered/Resolved]
  - Foetal exposure during pregnancy [Unknown]
